FAERS Safety Report 6389246-3 (Version None)
Quarter: 2009Q4

REPORT INFORMATION
  Report Type: 
  Country: None (occurrence: None)
  Receive Date: 20091006
  Receipt Date: 20090925
  Transmission Date: 20100525
  Serious: Yes (Other)
  Sender: FDA-Public Use
  Company Number: PHHY2009JP11520

PATIENT
  Sex: Male

DRUGS (3)
  1. ZADITEN [Suspect]
     Indication: RHINITIS ALLERGIC
     Dosage: 0.4 MG, BID
     Route: 048
     Dates: start: 20081129, end: 20090319
  2. KIPRES [Concomitant]
     Dosage: 4 MG
     Route: 048
     Dates: start: 20081119
  3. HOKUNALIN [Concomitant]
     Dosage: 0.5 MG DAILY
     Route: 062
     Dates: start: 20080412

REACTIONS (5)
  - CONVULSION [None]
  - COUGH [None]
  - FEBRILE CONVULSION [None]
  - NASOPHARYNGITIS [None]
  - RHINORRHOEA [None]
